FAERS Safety Report 20960900 (Version 2)
Quarter: 2022Q3

REPORT INFORMATION
  Report Type: Report from Study
  Country: US (occurrence: US)
  Receive Date: 20220615
  Receipt Date: 20220702
  Transmission Date: 20221027
  Serious: Yes (Hospitalization)
  Sender: FDA-Public Use
  Company Number: US-TEVA-2022-US-2045635

PATIENT
  Age: 30 Year
  Sex: Male

DRUGS (3)
  1. NAPROXEN [Suspect]
     Active Substance: NAPROXEN
     Indication: Fracture treatment
     Dosage: TWO DOSES ADMINISTERED AT HOME.
     Route: 065
  2. NAPROXEN [Suspect]
     Active Substance: NAPROXEN
     Dosage: ADDITIONAL DOSE, TWO DAYS LATER
     Route: 065
  3. KETOROLAC [Suspect]
     Active Substance: KETOROLAC TROMETHAMINE
     Indication: Fracture treatment
     Route: 042

REACTIONS (1)
  - Acute kidney injury [Recovered/Resolved]
